FAERS Safety Report 6479622-2 (Version None)
Quarter: 2009Q4

REPORT INFORMATION
  Report Type: 
  Country: None (occurrence: None)
  Receive Date: 20091207
  Receipt Date: 20091207
  Transmission Date: 20100525
  Serious: Yes (Hospitalization)
  Sender: FDA-Public Use
  Company Number: None

PATIENT
  Age: 64 Year
  Sex: Male
  Weight: 89.9 kg

DRUGS (2)
  1. MEPERIDINE HCL [Suspect]
     Indication: ENDOSCOPY
     Dosage: 50 MG ONCE IV
     Route: 042
     Dates: start: 20090930, end: 20090930
  2. MIDAZOLAM HCL [Suspect]
     Indication: ENDOSCOPY
     Dosage: 2 MG ONCE IV
     Route: 042
     Dates: start: 20090930, end: 20090930

REACTIONS (8)
  - CHEST DISCOMFORT [None]
  - ERYTHEMA MULTIFORME [None]
  - EYE IRRITATION [None]
  - HYPOTENSION [None]
  - MALAISE [None]
  - PRURITUS [None]
  - THROAT TIGHTNESS [None]
  - URTICARIA [None]
